FAERS Safety Report 6248998-3 (Version None)
Quarter: 2009Q2

REPORT INFORMATION
  Report Type: 
  Country: None (occurrence: None)
  Receive Date: 20090629
  Receipt Date: 20090619
  Transmission Date: 20091009
  Serious: Yes (Hospitalization)
  Sender: FDA-Public Use
  Company Number: JP-ABBOTT-09P-087-0576362-00

PATIENT
  Sex: Female
  Weight: 60 kg

DRUGS (8)
  1. HUMIRA [Suspect]
     Indication: RHEUMATOID ARTHRITIS
     Route: 058
     Dates: start: 20080807, end: 20090416
  2. METHOTREXATE [Concomitant]
     Indication: RHEUMATOID ARTHRITIS
     Route: 048
     Dates: start: 20021019, end: 20090501
  3. SODIUM RISEDRONATE HYDRATE [Concomitant]
     Indication: OSTEOPOROSIS
     Route: 048
     Dates: start: 20031116, end: 20080131
  4. SODIUM RISEDRONATE HYDRATE [Concomitant]
     Route: 048
     Dates: start: 20080801
  5. PREDNISOLONE [Concomitant]
     Indication: RHEUMATOID ARTHRITIS
     Route: 048
     Dates: start: 20050607, end: 20080918
  6. PREDNISOLONE [Concomitant]
     Route: 048
     Dates: start: 20080919, end: 20090122
  7. PREDNISOLONE [Concomitant]
     Route: 048
     Dates: start: 20090123, end: 20090501
  8. FEXOFENADINE HYDROCHLORIDE [Concomitant]
     Indication: RHINITIS ALLERGIC
     Route: 048
     Dates: start: 20031115

REACTIONS (6)
  - ASCITES [None]
  - DECREASED APPETITE [None]
  - GASTROINTESTINAL ULCER [None]
  - MALAISE [None]
  - RHEUMATOID ARTHRITIS [None]
  - TUBERCULOSIS GASTROINTESTINAL [None]
